FAERS Safety Report 5700285-5 (Version None)
Quarter: 2008Q2

REPORT INFORMATION
  Report Type: 
  Country: None (occurrence: None)
  Receive Date: 20080410
  Receipt Date: 20080330
  Transmission Date: 20081010
  Serious: Yes (Death)
  Sender: FDA-Public Use
  Company Number: A0698452A

PATIENT
  Age: 55 Year
  Sex: Female
  Weight: 45 kg

DRUGS (3)
  1. PAZOPANIB [Suspect]
     Dosage: 800MG PER DAY
     Route: 048
     Dates: start: 20071026, end: 20071206
  2. LAPATINIB [Suspect]
     Dosage: 1500MG PER DAY
     Route: 048
     Dates: start: 20071026, end: 20071206
  3. LOPERAMIDE HCL [Concomitant]
     Dosage: 2MG AS REQUIRED
     Route: 048
     Dates: start: 20071207, end: 20071208

REACTIONS (5)
  - CIRCULATORY COLLAPSE [None]
  - FATIGUE [None]
  - RETCHING [None]
  - SUDDEN DEATH [None]
  - VOMITING [None]
